FAERS Safety Report 7118566-X (Version None)
Quarter: 2010Q4

REPORT INFORMATION
  Report Type: 
  Country: None (occurrence: None)
  Receive Date: 20101123
  Receipt Date: 20101118
  Transmission Date: 20110411
  Serious: Yes (Other)
  Sender: FDA-Public Use
  Company Number: US-BAYER-201023663BCC

PATIENT
  Sex: Female

DRUGS (1)
  1. ASPIRIN [Suspect]
     Indication: PALPITATIONS
     Dosage: 4-5 TABLETS DAILY / BOTTLE COUNT 100S
     Route: 048
     Dates: start: 20080101

REACTIONS (1)
  - DRUG DEPENDENCE [None]
